FAERS Safety Report 23844862 (Version 1)
Quarter: 2024Q2

REPORT INFORMATION
  Report Type: Other
  Country: BR (occurrence: None)
  Receive Date: 20240511
  Receipt Date: 20240511
  Transmission Date: 20240716
  Serious: Yes (Hospitalization, Other)
  Sender: FDA-Public Use
  Company Number: BR-ROCHE-2044383

PATIENT
  Sex: Female
  Weight: 72.3 kg

DRUGS (9)
  1. ACTEMRA [Suspect]
     Active Substance: TOCILIZUMAB
     Indication: Rheumatoid arthritis
     Dosage: LATEST RECEIVED DOSE ON 25/MAY/2018
     Route: 042
     Dates: start: 20150901
  2. PREDNISONE [Concomitant]
     Active Substance: PREDNISONE
     Indication: Rheumatoid arthritis
  3. LOSARTAN [Concomitant]
     Active Substance: LOSARTAN
     Indication: Hypertension
  4. TORSILAX [Concomitant]
     Active Substance: ACETAMINOPHEN\CAFFEINE\CARISOPRODOL\DICLOFENAC
     Indication: Arthralgia
  5. TORSILAX [Concomitant]
     Active Substance: ACETAMINOPHEN\CAFFEINE\CARISOPRODOL\DICLOFENAC
     Indication: Osteoporosis
  6. PURAN [Concomitant]
     Active Substance: LEVOTHYROXINE SODIUM
     Indication: Thyroid disorder
  7. ARAVA [Concomitant]
     Active Substance: LEFLUNOMIDE
     Indication: Rheumatoid arthritis
  8. PROLIA [Concomitant]
     Active Substance: DENOSUMAB
     Indication: Rheumatoid arthritis
  9. SIMVASTATIN [Concomitant]
     Active Substance: SIMVASTATIN

REACTIONS (6)
  - Arthritis infective [Recovering/Resolving]
  - Pain [Not Recovered/Not Resolved]
  - Bone disorder [Recovering/Resolving]
  - Infection [Recovering/Resolving]
  - Arthropathy [Recovering/Resolving]
  - Diabetes mellitus [Unknown]
